FAERS Safety Report 4433924-X (Version None)
Quarter: 2004Q3

REPORT INFORMATION
  Report Type: 
  Country: None (occurrence: None)
  Receive Date: 20040825
  Receipt Date: 20040818
  Transmission Date: 20050211
  Serious: Yes (Hospitalization, Disabling)
  Sender: FDA-Public Use
  Company Number: GBWYE991120AUG04

PATIENT
  Age: 33 Year
  Sex: Female

DRUGS (1)
  1. BENZHEXOL (TRIHEXYPHENIDYL, UNSPEC, 0) [Suspect]
     Indication: DYSTONIA
     Dosage: 2 MG 1 PER 1 DAY; ORAL
     Route: 048
     Dates: start: 20040201

REACTIONS (1)
  - MANIA [None]
